FAERS Safety Report 7009636-5 (Version None)
Quarter: 2010Q3

REPORT INFORMATION
  Report Type: 
  Country: None (occurrence: None)
  Receive Date: 20100903
  Receipt Date: 20100617
  Transmission Date: 20110219
  Serious: Yes (Other)
  Sender: FDA-Public Use
  Company Number: 2010076476

PATIENT
  Sex: Female

DRUGS (1)
  1. DETROL LA [Suspect]

REACTIONS (1)
  - URINARY RETENTION [None]
